FAERS Safety Report 10094323 (Version 1)
Quarter: 2014Q2

REPORT INFORMATION
  Report Type: Spontaneous
  Country: US (occurrence: US)
  Receive Date: 20140422
  Receipt Date: 20140422
  Transmission Date: 20141212
  Serious: Yes (Other)
  Sender: FDA-Public Use
  Company Number: US-BRISTOL-MYERS SQUIBB COMPANY-18715318

PATIENT
  Age: 60 Year
  Sex: Female
  Weight: 59.9 kg

DRUGS (3)
  1. HYDREA [Suspect]
     Dates: start: 200208, end: 20120827
  2. ASA [Concomitant]
  3. CLARITIN [Concomitant]

REACTIONS (2)
  - Skin ulcer [Unknown]
  - Blood test abnormal [Unknown]
